FAERS Safety Report 18517305 (Version 1)
Quarter: 2020Q4

REPORT INFORMATION
  Report Type: Spontaneous
  Country: US (occurrence: US)
  Receive Date: 20201118
  Receipt Date: 20201118
  Transmission Date: 20210114
  Serious: Yes (Life-Threatening, Hospitalization)
  Sender: FDA-Public Use
  Company Number: None

PATIENT
  Age: 64 Year
  Sex: Female
  Weight: 78.6 kg

DRUGS (3)
  1. BUPROPION XL [Suspect]
     Active Substance: BUPROPION
     Indication: DEPRESSION
     Route: 048
  2. BUSPIRONE [Suspect]
     Active Substance: BUSPIRONE HYDROCHLORIDE
     Indication: DEPRESSION
     Route: 048
  3. DULOXETINE 60MG DAILY [Suspect]
     Active Substance: DULOXETINE
     Dates: start: 20160301, end: 20200305

REACTIONS (6)
  - Sepsis [None]
  - Unresponsive to stimuli [None]
  - Electrocardiogram ST segment depression [None]
  - Serotonin syndrome [None]
  - Mental status changes [None]
  - Hypotension [None]

NARRATIVE: CASE EVENT DATE: 20200305
